FAERS Safety Report 9377853 (Version 1)
Quarter: 2013Q2

REPORT INFORMATION
  Report Type: Spontaneous
  Country: US (occurrence: None)
  Receive Date: 20130625
  Receipt Date: 20130625
  Transmission Date: 20140414
  Serious: Yes (Hospitalization, Other)
  Sender: FDA-Public Use
  Company Number: USA/USA/13/0030078

PATIENT
  Age: 27 Year
  Sex: Female

DRUGS (4)
  1. ZIPRASIDONE [Suspect]
     Indication: PSYCHOTIC DISORDER
  2. RISPERIDONE (RISPERIDONE) [Suspect]
     Indication: PSYCHOTIC DISORDER
  3. METFORMIN (METFORMIN HYDROCHLORIDE) [Concomitant]
  4. GLIPIZIDE (GLIPIZIDE) [Concomitant]

REACTIONS (3)
  - Suicide attempt [None]
  - Sedation [None]
  - Diabetes mellitus [None]
